FAERS Safety Report 17387837 (Version 1)
Quarter: 2020Q1

REPORT INFORMATION
  Report Type: Spontaneous
  Country: US (occurrence: US)
  Receive Date: 20200122
  Receipt Date: 20200122
  Transmission Date: 20200409
  Serious: Yes (Hospitalization, Other)
  Sender: FDA-Public Use
  Company Number: None

PATIENT
  Age: 84 Year
  Sex: Female
  Weight: 69.85 kg

DRUGS (5)
  1. EYLEA [Suspect]
     Active Substance: AFLIBERCEPT
     Indication: NEOVASCULAR AGE-RELATED MACULAR DEGENERATION
     Dosage: ?          QUANTITY:1 DF DOSAGE FORM;OTHER FREQUENCY:EVERY 4-5 WEEKS;?
     Route: 031
     Dates: start: 201904
  2. EYE VIT [Concomitant]
  3. VITAMIN D3 [Concomitant]
     Active Substance: CHOLECALCIFEROL
  4. BENADRYL [Concomitant]
     Active Substance: DIPHENHYDRAMINE HYDROCHLORIDE
  5. VIT B [Concomitant]
     Active Substance: VITAMIN B

REACTIONS (7)
  - Vision blurred [None]
  - Ocular hyperaemia [None]
  - Eye pain [None]
  - Eye pruritus [None]
  - Abnormal sensation in eye [None]
  - Eye swelling [None]
  - Lacrimation increased [None]

NARRATIVE: CASE EVENT DATE: 201911
